FAERS Safety Report 7362013-X (Version None)
Quarter: 2011Q1

REPORT INFORMATION
  Report Type: 
  Country: None (occurrence: None)
  Receive Date: 20110318
  Receipt Date: 20110317
  Transmission Date: 20110831
  Serious: Yes (Other)
  Sender: FDA-Public Use
  Company Number: TR-PFIZER INC-2011058827

PATIENT
  Age: 35 Year
  Sex: Female

DRUGS (2)
  1. DETRUSITOL SR [Suspect]
     Dosage: 4 MG, UNK
     Route: 048
  2. MONUROL [Concomitant]

REACTIONS (1)
  - HEPATIC ENZYME INCREASED [None]
